FAERS Safety Report 21458148 (Version 8)
Quarter: 2024Q1

REPORT INFORMATION
  Report Type: Report from Study
  Country: DE (occurrence: DE)
  Receive Date: 20221014
  Receipt Date: 20240305
  Transmission Date: 20240410
  Serious: Yes (Hospitalization, Other)
  Sender: FDA-Public Use
  Company Number: DE-PFM-2021-04312

PATIENT
  Age: 84 Year
  Sex: Male
  Weight: 67 kg

DRUGS (4)
  1. BRAFTOVI [Suspect]
     Active Substance: ENCORAFENIB
     Indication: Colorectal cancer
     Dosage: 300 MG/ DAY
     Route: 048
     Dates: start: 20210222, end: 20211219
  2. BRAFTOVI [Suspect]
     Active Substance: ENCORAFENIB
     Dosage: UNK
     Route: 048
     Dates: start: 20220112
  3. CETUXIMAB [Suspect]
     Active Substance: CETUXIMAB
     Indication: Colorectal cancer
     Dosage: 250 MG/M2, WEEKLY (FORMULATION LIQUID)
     Route: 042
     Dates: start: 20210222
  4. CETUXIMAB [Suspect]
     Active Substance: CETUXIMAB
     Dosage: 250 MG/M2, WEEKLY(FORMULATION LIQUID)
     Route: 042
     Dates: start: 20210907, end: 20211214

REACTIONS (6)
  - Blood urine [Recovered/Resolved]
  - Vascular stent occlusion [Recovered/Resolved]
  - Constipation [Recovered/Resolved]
  - Cholangitis [Recovered/Resolved]
  - Stent placement [Recovered/Resolved]
  - Peripheral swelling [Recovered/Resolved]

NARRATIVE: CASE EVENT DATE: 20210304
